FAERS Safety Report 10082761 (Version 2)
Quarter: 2014Q2

REPORT INFORMATION
  Report Type: Spontaneous
  Country: US (occurrence: US)
  Receive Date: 20140416
  Receipt Date: 20140514
  Transmission Date: 20141212
  Serious: No
  Sender: FDA-Public Use
  Company Number: US-009507513-1404USA009458

PATIENT
  Age: 66 Year
  Sex: Female

DRUGS (2)
  1. HYZAAR [Suspect]
     Dosage: UNK
     Route: 048
     Dates: start: 201309
  2. HYZAAR [Suspect]
     Dosage: 1/2 DF
     Route: 048

REACTIONS (5)
  - Drug administration error [Unknown]
  - Wrong technique in drug usage process [Unknown]
  - Drug prescribing error [Unknown]
  - No adverse event [Unknown]
  - Product quality issue [Unknown]
